FAERS Safety Report 5423248-6 (Version None)
Quarter: 2007Q3

REPORT INFORMATION
  Report Type: 
  Country: None (occurrence: None)
  Receive Date: 20070730
  Receipt Date: 20070604
  Transmission Date: 20080115
  Serious: Yes (Other)
  Sender: FDA-Public Use
  Company Number: 200711005BWH

PATIENT

DRUGS (1)
  1. AVELOX [Suspect]
     Dosage: ORAL
     Route: 048
     Dates: start: 20070301

REACTIONS (1)
  - HYPERSENSITIVITY [None]
